FAERS Safety Report 6507565-4 (Version None)
Quarter: 2009Q4

REPORT INFORMATION
  Report Type: 
  Country: None (occurrence: None)
  Receive Date: 20091221
  Receipt Date: 20091214
  Transmission Date: 20100525
  Serious: Yes (Death, Hospitalization, Other)
  Sender: FDA-Public Use
  Company Number: HU-BRISTOL-MYERS SQUIBB COMPANY-14898746

PATIENT
  Age: 52 Year
  Sex: Male
  Weight: 47 kg

DRUGS (13)
  1. CETUXIMAB [Suspect]
     Indication: HEAD AND NECK CANCER
     Route: 042
     Dates: start: 20090623, end: 20091110
  2. CISPLATIN [Suspect]
     Indication: HEAD AND NECK CANCER
     Dosage: 40MG/M2,1 IN 1 WK,23JUN09-02NOV09 23JUN09-STOPPED
     Route: 042
     Dates: start: 20090623, end: 20091102
  3. TAXOTERE [Suspect]
     Indication: HEAD AND NECK CANCER
     Route: 042
     Dates: start: 20090623, end: 20090826
  4. FLUOROURACIL [Suspect]
     Indication: HEAD AND NECK CANCER
     Route: 042
     Dates: start: 20090623, end: 20090831
  5. RADIOTHERAPY [Suspect]
     Indication: HEAD AND NECK CANCER
     Dosage: 1DOSAGEFORM=46GY
     Dates: start: 20091012, end: 20091204
  6. TIGECYCLINE [Concomitant]
     Indication: INFECTION
     Route: 042
     Dates: start: 20091126, end: 20091204
  7. CAPTOPRIL [Concomitant]
     Indication: HYPERTENSION
     Route: 048
     Dates: start: 20091206, end: 20091207
  8. KABIVEN [Concomitant]
     Indication: PROPHYLAXIS
     Dosage: INFUSION
     Route: 042
     Dates: start: 20091205
  9. FILGRASTIM [Concomitant]
     Indication: NEUTROPENIA
     Route: 058
     Dates: start: 20091205
  10. MANNITOL [Concomitant]
     Indication: PROPHYLAXIS
     Dosage: 20%
     Route: 042
     Dates: start: 20091207
  11. GLYCERIN [Concomitant]
     Indication: PROPHYLAXIS
     Route: 042
     Dates: start: 20091207
  12. VITAMIN B1 TAB [Concomitant]
     Dosage: 1DOSAGEFORM=1AMP
     Route: 030
     Dates: start: 20091207
  13. DEXAMETHASONE TAB [Concomitant]
     Indication: PROPHYLAXIS
     Route: 042
     Dates: start: 20091208, end: 20091210

REACTIONS (15)
  - BLOOD CULTURE POSITIVE [None]
  - CEREBELLAR ATROPHY [None]
  - CEREBRAL ATROPHY [None]
  - CONFUSIONAL STATE [None]
  - DIZZINESS [None]
  - DYSPHAGIA [None]
  - FATIGUE [None]
  - GENERAL PHYSICAL HEALTH DETERIORATION [None]
  - MUCOSAL INFLAMMATION [None]
  - NERVOUS SYSTEM DISORDER [None]
  - NEUTROPENIA [None]
  - PYREXIA [None]
  - RADIATION MUCOSITIS [None]
  - SOMNOLENCE [None]
  - STAPHYLOCOCCAL INFECTION [None]
